FAERS Safety Report 5838430-3 (Version None)
Quarter: 2008Q3

REPORT INFORMATION
  Report Type: 
  Country: None (occurrence: None)
  Receive Date: 20080808
  Receipt Date: 20080730
  Transmission Date: 20090109
  Serious: Yes (Other)
  Sender: FDA-Public Use
  Company Number: US-JNJFOC-20080304018

PATIENT
  Sex: Female
  Weight: 86.18 kg

DRUGS (7)
  1. DURAGESIC-100 [Suspect]
     Dosage: THREE 12.5 UG PATCHES
     Route: 062
  2. DURAGESIC-100 [Suspect]
     Dosage: 12.5 AND  25 UG/HR PATCHES
     Route: 062
  3. DURAGESIC-100 [Suspect]
     Indication: MUSCULOSKELETAL PAIN
     Dosage: 12.5 AND 25 UG/HR PATCHES
     Route: 062
  4. FENTANYL TRANSDERMAL SYSTEM [Suspect]
     Indication: MUSCULOSKELETAL PAIN
     Dosage: 12.5 AND 25 UG/HR PATCHES
     Route: 062
  5. CYMBALTA [Suspect]
     Indication: DRUG USE FOR UNKNOWN INDICATION
  6. ULTRAM [Concomitant]
     Indication: BREAKTHROUGH PAIN
     Dosage: 1-2 50 MG TABLETS EVERY 6 HOURS AS NEEDED
     Route: 048
  7. DEPAKOTE [Concomitant]
     Indication: NEURALGIA
     Route: 048

REACTIONS (6)
  - DRUG EFFECT DECREASED [None]
  - FATIGUE [None]
  - JOINT DISLOCATION [None]
  - NEURALGIA [None]
  - PHARMACEUTICAL PRODUCT COMPLAINT [None]
  - WRONG TECHNIQUE IN DRUG USAGE PROCESS [None]
